FAERS Safety Report 19928041 (Version 1)
Quarter: 2021Q4

REPORT INFORMATION
  Report Type: Spontaneous
  Country: US (occurrence: US)
  Receive Date: 20211007
  Receipt Date: 20211007
  Transmission Date: 20220303
  Serious: Yes (Other)
  Sender: FDA-Public Use
  Company Number: US-NOVARTISPH-NVSC2021US223884

PATIENT
  Age: 17 Year
  Sex: Female

DRUGS (2)
  1. ITRACONAZOLE [Interacting]
     Active Substance: ITRACONAZOLE
     Indication: Histoplasmosis disseminated
     Dosage: UNK UNK, UNKNOWN
     Route: 065
  2. AMPHOTERICIN B [Concomitant]
     Active Substance: AMPHOTERICIN B
     Indication: Histoplasmosis disseminated
     Dosage: UNK UNK, UNKNOWN
     Route: 065

REACTIONS (9)
  - Adrenal insufficiency [Unknown]
  - Spinal compression fracture [Unknown]
  - Diabetes mellitus [Unknown]
  - Drug interaction [Unknown]
  - Weight increased [Unknown]
  - Cushingoid [Unknown]
  - Lipohypertrophy [Unknown]
  - Abdominal distension [Unknown]
  - Skin striae [Unknown]
